FAERS Safety Report 5729835-X (Version None)
Quarter: 2008Q2

REPORT INFORMATION
  Report Type: 
  Country: None (occurrence: None)
  Receive Date: 20080501
  Receipt Date: 20080421
  Transmission Date: 20081010
  Serious: Yes (Life-Threatening, Hospitalization)
  Sender: FDA-Public Use
  Company Number: 000741

PATIENT
  Age: 43 Year
  Sex: Female

DRUGS (6)
  1. BUSULFEX [Suspect]
     Indication: STEM CELL TRANSPLANT
     Dosage: 28.28 ML INTRAVENOUS
     Route: 042
     Dates: start: 20070725, end: 20070726
  2. FLUDARABINE PHOSPHATE [Concomitant]
  3. MELPHALAN (MELPHALAN) [Concomitant]
  4. VALPROATE SODIUM [Concomitant]
  5. CYCLOSPORINE [Concomitant]
  6. IRINOTECAN HCL [Concomitant]

REACTIONS (7)
  - ACUTE GRAFT VERSUS HOST DISEASE [None]
  - ANOREXIA [None]
  - DIARRHOEA [None]
  - FEBRILE NEUTROPENIA [None]
  - MALAISE [None]
  - MENINGITIS [None]
  - STEM CELL TRANSPLANT [None]
